FAERS Safety Report 7658113-7 (Version None)
Quarter: 2011Q3

REPORT INFORMATION
  Report Type: 
  Country: None (occurrence: None)
  Receive Date: 20110805
  Receipt Date: 20110726
  Transmission Date: 20111222
  Serious: Yes (Other)
  Sender: FDA-Public Use
  Company Number: CA-JNJFOC-20110508355

PATIENT
  Sex: Female
  Weight: 78 kg

DRUGS (11)
  1. REMICADE [Suspect]
     Indication: CROHN'S DISEASE
     Route: 042
     Dates: start: 20060303
  2. ATIVAN [Concomitant]
     Route: 065
  3. MULTI-VITAMINS [Concomitant]
     Route: 065
  4. FLAXSEED OIL [Concomitant]
     Route: 065
  5. ZOLOFT [Concomitant]
     Route: 065
  6. CYMBALTA [Concomitant]
     Route: 065
  7. BENADRYL [Concomitant]
     Route: 065
  8. SOLUCORT [Concomitant]
     Route: 065
  9. FISH OIL [Concomitant]
     Route: 065
  10. PROPRANOLOL [Concomitant]
     Route: 065
  11. GABAPENTIN [Concomitant]
     Route: 065

REACTIONS (3)
  - ABORTION SPONTANEOUS [None]
  - CONJUNCTIVITIS BACTERIAL [None]
  - MATERNAL EXPOSURE DURING PREGNANCY [None]
